FAERS Safety Report 16348640 (Version 3)
Quarter: 2019Q2

REPORT INFORMATION
  Report Type: Spontaneous
  Country: DE (occurrence: DE)
  Receive Date: 20190523
  Receipt Date: 20190604
  Transmission Date: 20190711
  Serious: Yes (Life-Threatening, Hospitalization, Other)
  Sender: FDA-Public Use
  Company Number: DE-009507513-1905DEU008439

PATIENT
  Age: 37 Year
  Sex: Female

DRUGS (11)
  1. PEMETREXED DISODIUM [Suspect]
     Active Substance: PEMETREXED DISODIUM
     Indication: NON-SMALL CELL LUNG CANCER METASTATIC
     Dosage: 500 MILLIGRAM/SQ. METER, CYCLICAL
     Dates: start: 20190321
  2. CISPLATIN. [Suspect]
     Active Substance: CISPLATIN
     Indication: NON-SMALL CELL LUNG CANCER METASTATIC
     Dosage: 75 MILLIGRAM/SQ. METER,CYCLICAL
     Dates: start: 20190321
  3. AMINEURIN [Concomitant]
     Active Substance: AMITRIPTYLINE HYDROCHLORIDE
     Dosage: 100 MILLIGRAM, QD
     Dates: start: 2019
  4. FOLVERLAN [Concomitant]
     Active Substance: FOLIC ACID
     Dosage: 0.4 MILLIGRAM, QD (ONCE DAILY)
     Dates: start: 2019
  5. PALLADON [Concomitant]
     Active Substance: HYDROMORPHONE
     Dosage: 2.6 MILLIGRAM, PRN (AS NEEDED UP TO 6 CAPSULES)
     Dates: start: 2019
  6. PANTOPRAZOLE [Concomitant]
     Active Substance: PANTOPRAZOLE
     Dosage: 40 MILLIGRAM, QD (ONCE DAILY)
     Dates: start: 2019
  7. BETAMETHASONE DIPROPIONATE. [Suspect]
     Active Substance: BETAMETHASONE DIPROPIONATE
     Indication: DRUG ERUPTION
     Dosage: UNK
     Dates: start: 201903
  8. DUROGESIC [Concomitant]
     Active Substance: FENTANYL
     Dosage: 0.075 MILLIGRAM/HOUR, Q3D (1 PATCH EVERY 3 DAYS)
     Dates: start: 2019
  9. VITAMIN WORLD CALCIUM PLUS VITAMIN D3 [Concomitant]
     Dosage: 500MG/400IU, QD (ONCE DAILY)
     Dates: start: 2019
  10. GABAPENTIN. [Concomitant]
     Active Substance: GABAPENTIN
     Dosage: 300 MILLIGRAM, THREE TIME A DAY
     Dates: start: 2019
  11. KEYTRUDA [Suspect]
     Active Substance: PEMBROLIZUMAB
     Indication: NON-SMALL CELL LUNG CANCER METASTATIC
     Dosage: 200 MILLIGRAM, 1ST CYCLE
     Dates: start: 20190321, end: 20190321

REACTIONS (17)
  - Pain [Recovered/Resolved]
  - Skin exfoliation [Recovered/Resolved]
  - Central venous catheterisation [Unknown]
  - General physical health deterioration [Recovered/Resolved]
  - Staphylococcal bacteraemia [Recovered/Resolved]
  - Immune-mediated adverse reaction [Recovered/Resolved]
  - Skin lesion [Unknown]
  - Metastases to bone [Unknown]
  - Lymphadenopathy [Unknown]
  - C-reactive protein increased [Unknown]
  - Pyrexia [Recovered/Resolved]
  - Fractured sacrum [Unknown]
  - Wound [Unknown]
  - Hypocalcaemia [Unknown]
  - Oral candidiasis [Unknown]
  - Conjunctivitis [Recovered/Resolved]
  - Hepatic enzyme increased [Unknown]

NARRATIVE: CASE EVENT DATE: 2019
